FAERS Safety Report 18741223 (Version 4)
Quarter: 2024Q3

REPORT INFORMATION
  Report Type: Spontaneous
  Country: US (occurrence: US)
  Receive Date: 20210114
  Receipt Date: 20240812
  Transmission Date: 20241016
  Serious: Yes (Hospitalization, Other)
  Sender: GLAXOSMITHKLINE
  Company Number: US-GSKCCFUS-CASE-00941121_AE-55794

PATIENT

DRUGS (2)
  1. TRELEGY ELLIPTA [Suspect]
     Active Substance: FLUTICASONE FUROATE\UMECLIDINIUM BROMIDE\VILANTEROL TRIFENATATE
     Indication: Chronic obstructive pulmonary disease
     Dosage: 1 PUFF(S), QD
     Route: 055
     Dates: start: 20190108, end: 20240805
  2. VENTOLIN HFA [Suspect]
     Active Substance: ALBUTEROL SULFATE
     Indication: Wheezing
     Dosage: 2 PUFF(S) (EVERY 4 HOURS AS NEEDED)
     Route: 055
     Dates: start: 2000

REACTIONS (14)
  - Ulcer [Unknown]
  - Brain neoplasm [Not Recovered/Not Resolved]
  - Cataract [Unknown]
  - Glaucoma [Not Recovered/Not Resolved]
  - Blindness [Unknown]
  - Diabetes mellitus [Unknown]
  - Intraocular pressure increased [Not Recovered/Not Resolved]
  - Blood glucose increased [Not Recovered/Not Resolved]
  - Gastrointestinal disorder [Unknown]
  - Borderline glaucoma [Unknown]
  - Dyspnoea [Unknown]
  - Gait inability [Unknown]
  - Hypertension [Unknown]
  - Memory impairment [Unknown]

NARRATIVE: CASE EVENT DATE: 20210401
